FAERS Safety Report 9498463 (Version 1)
Quarter: 2013Q3

REPORT INFORMATION
  Report Type: Spontaneous
  Country: GB (occurrence: GB)
  Receive Date: 20130904
  Receipt Date: 20130904
  Transmission Date: 20140515
  Serious: Yes (Hospitalization)
  Sender: FDA-Public Use
  Company Number: GB-TEVA-429481ISR

PATIENT
  Age: 74 Year
  Sex: Female

DRUGS (2)
  1. SIMVASTATIN [Suspect]
     Dosage: 20 MILLIGRAM DAILY;
     Route: 048
  2. CLARITHROMYCIN [Interacting]
     Indication: BLISTER INFECTED
     Route: 048

REACTIONS (4)
  - Muscular weakness [Unknown]
  - Drug interaction [Unknown]
  - Malaise [Unknown]
  - Muscular weakness [Unknown]
